FAERS Safety Report 6325002-X (Version None)
Quarter: 2009Q3

REPORT INFORMATION
  Report Type: 
  Country: None (occurrence: None)
  Receive Date: 20090824
  Receipt Date: 20090616
  Transmission Date: 20100115
  Serious: No
  Sender: FDA-Public Use
  Company Number: US-ABBOTT-09P-163-0580562-00

PATIENT
  Sex: Female
  Weight: 65.83 kg

DRUGS (9)
  1. NIASPAN [Suspect]
     Indication: BLOOD CHOLESTEROL INCREASED
     Route: 048
     Dates: start: 20081101
  2. VITAMIN D [Suspect]
     Indication: VITAMIN D DEFICIENCY
     Route: 048
     Dates: start: 20081201
  3. NEXIUM [Concomitant]
     Indication: GASTROOESOPHAGEAL REFLUX DISEASE
  4. AVAPRO [Concomitant]
     Indication: HYPERTENSION
  5. ASPIRIN [Concomitant]
     Indication: PROPHYLAXIS
     Dosage: 0.5 HOURS BEFORE TAKING NIASPAN
  6. ASPIRIN [Concomitant]
     Indication: FLUSHING
  7. FLAXSEED [Concomitant]
     Indication: BLOOD CHOLESTEROL INCREASED
     Dosage: 4-6 PILLS WEEKLY
  8. FLAXSEED [Concomitant]
     Indication: CARDIAC DISORDER
  9. CENTRUM CARDIO VITAMIN [Concomitant]
     Indication: DRUG USE FOR UNKNOWN INDICATION
     Dosage: 3-4 TIMES WEEKLY

REACTIONS (3)
  - ARTHRALGIA [None]
  - JOINT STIFFNESS [None]
  - MUSCLE STRAIN [None]
